FAERS Safety Report 13321641 (Version 4)
Quarter: 2017Q1

REPORT INFORMATION
  Report Type: Spontaneous
  Country: US (occurrence: US)
  Receive Date: 20170310
  Receipt Date: 20170329
  Transmission Date: 20170428
  Serious: Yes (Death, Other)
  Sender: FDA-Public Use
  Company Number: US-B.I. PHARMACEUTICALS,INC./RIDGEFIELD-2017-BI-013567

PATIENT
  Sex: Male

DRUGS (2)
  1. GILOTRIF [Suspect]
     Active Substance: AFATINIB
     Indication: LUNG NEOPLASM MALIGNANT
     Dosage: QD;  FORM STRENGTH: 40 MG; FORMULATION: TABLET? ADMINISTRATION CORRECT? NR(NOT REPORTED) ?ACTION(S)
     Route: 048
     Dates: start: 20160128, end: 20160524
  2. GILOTRIF [Suspect]
     Active Substance: AFATINIB
     Dosage: QD;  FORM STRENGTH: 30 MG; FORMULATION: TABLET? ADMINISTRATION CORRECT? NR(NOT REPORTED) ?ACTION(S)
     Route: 048
     Dates: start: 201606, end: 20161117

REACTIONS (3)
  - Malignant neoplasm progression [Fatal]
  - Cerebrovascular accident [Unknown]
  - Metastases to central nervous system [Fatal]
